FAERS Safety Report 19278885 (Version 1)
Quarter: 2021Q2

REPORT INFORMATION
  Report Type: Spontaneous
  Country: GB (occurrence: GB)
  Receive Date: 20210520
  Receipt Date: 20210520
  Transmission Date: 20210717
  Serious: Yes (Other)
  Sender: FDA-Public Use
  Company Number: GB-MYLANLABS-2021M1024067

PATIENT
  Age: 41 Year
  Sex: Male

DRUGS (1)
  1. CLOZARIL [Suspect]
     Active Substance: CLOZAPINE
     Indication: SCHIZOPHRENIA
     Dosage: UNK
     Route: 048
     Dates: start: 20140124, end: 20210414

REACTIONS (3)
  - Differential white blood cell count abnormal [Unknown]
  - Antipsychotic drug level decreased [Recovering/Resolving]
  - Schizophrenia [Unknown]

NARRATIVE: CASE EVENT DATE: 20210414
